FAERS Safety Report 13504064 (Version 7)
Quarter: 2018Q1

REPORT INFORMATION
  Report Type: Report from Study
  Country: TW (occurrence: TW)
  Receive Date: 20170502
  Receipt Date: 20180309
  Transmission Date: 20180508
  Serious: Yes (Life-Threatening, Hospitalization, Other)
  Sender: FDA-Public Use
  Company Number: TW-INCYTE CORPORATION-2017IN003274

PATIENT

DRUGS (16)
  1. JAKAVI [Suspect]
     Active Substance: RUXOLITINIB
     Dosage: 10 MG, UNK
     Route: 048
     Dates: start: 20170509
  2. AMIODARONE HCL [Concomitant]
     Active Substance: AMIODARONE HYDROCHLORIDE
     Dosage: 200 MG, UNK
     Route: 048
     Dates: start: 20170422, end: 20170422
  3. BISOPROLOL [Concomitant]
     Active Substance: BISOPROLOL
     Indication: PRODUCT USED FOR UNKNOWN INDICATION
     Dosage: 1 DF, UNK
     Route: 048
     Dates: start: 20170519, end: 20170817
  4. JAKAVI [Suspect]
     Active Substance: RUXOLITINIB
     Indication: MYELOFIBROSIS
     Dosage: 10 MG, UNK
     Route: 048
     Dates: start: 20161226, end: 20170417
  5. AMIODARONE HCL [Concomitant]
     Active Substance: AMIODARONE HYDROCHLORIDE
     Indication: PRODUCT USED FOR UNKNOWN INDICATION
     Dosage: 200 MG, UNK
     Route: 048
     Dates: start: 20170418, end: 20170418
  6. APIXABAN [Concomitant]
     Active Substance: APIXABAN
     Indication: PRODUCT USED FOR UNKNOWN INDICATION
     Dosage: 2.5 MG, UNK
     Route: 048
     Dates: start: 20170423, end: 20170501
  7. COLCHICINE. [Concomitant]
     Active Substance: COLCHICINE
     Indication: PRODUCT USED FOR UNKNOWN INDICATION
     Dosage: 0.5 MG, UNK
     Route: 048
     Dates: start: 20170612, end: 20170703
  8. FUROSEMIDE. [Concomitant]
     Active Substance: FUROSEMIDE
     Indication: PRODUCT USED FOR UNKNOWN INDICATION
     Dosage: 0.5 DF, UNK
     Route: 048
     Dates: start: 20140519, end: 20170817
  9. MAGNESIUM OXIDE. [Concomitant]
     Active Substance: MAGNESIUM OXIDE
     Indication: PRODUCT USED FOR UNKNOWN INDICATION
     Dosage: 250 MG, UNK
     Route: 048
     Dates: start: 20170824, end: 20171116
  10. DABIGATRAN [Concomitant]
     Active Substance: DABIGATRAN
     Indication: PRODUCT USED FOR UNKNOWN INDICATION
     Dosage: 1 DF, UNK
     Route: 048
     Dates: start: 20140512, end: 20170817
  11. HYDROXYUREA. [Concomitant]
     Active Substance: HYDROXYUREA
     Dosage: 500 MG, UNK
     Route: 048
     Dates: start: 20170612, end: 20171002
  12. COLCHICINE. [Concomitant]
     Active Substance: COLCHICINE
     Dosage: 0.5 MG, UNK
     Route: 048
     Dates: start: 20170807, end: 20171009
  13. DABIGATRAN [Concomitant]
     Active Substance: DABIGATRAN
     Indication: ATRIAL FIBRILLATION
     Dosage: 1 DF, UNK
     Route: 048
     Dates: start: 20161215
  14. DEXLANSOPRAZOLE [Concomitant]
     Active Substance: DEXLANSOPRAZOLE
     Indication: PRODUCT USED FOR UNKNOWN INDICATION
     Dosage: 60 MG, UNK
     Route: 048
     Dates: start: 20170204, end: 20170214
  15. HYDROXYUREA. [Concomitant]
     Active Substance: HYDROXYUREA
     Indication: PRODUCT USED FOR UNKNOWN INDICATION
     Dosage: 500 MG, UNK
     Route: 048
     Dates: start: 20070809
  16. AMIODARONE HCL [Concomitant]
     Active Substance: AMIODARONE HYDROCHLORIDE
     Dosage: 200 MG, UNK
     Route: 048
     Dates: start: 20170421, end: 20170421

REACTIONS (49)
  - Haemodynamic instability [Not Recovered/Not Resolved]
  - Dizziness [Unknown]
  - Hypotension [Unknown]
  - Cough [Unknown]
  - Cerebral haemorrhage [Recovering/Resolving]
  - Pneumonia [Recovered/Resolved]
  - Abdominal infection [Not Recovered/Not Resolved]
  - Anaemia [Recovered/Resolved]
  - Pulmonary congestion [Unknown]
  - Musculoskeletal stiffness [Unknown]
  - Injection site erythema [Recovered/Resolved]
  - Injection site pain [Recovered/Resolved]
  - Liver disorder [Unknown]
  - Cholelithiasis [Unknown]
  - Myelofibrosis [Unknown]
  - Tenderness [Unknown]
  - Pain [Not Recovered/Not Resolved]
  - Injection site phlebitis [Recovered/Resolved]
  - Soft tissue infection [Not Recovered/Not Resolved]
  - Atrial fibrillation [Not Recovered/Not Resolved]
  - Hepatic cyst [Unknown]
  - Acute respiratory failure [Recovered/Resolved]
  - Breast neoplasm [Unknown]
  - Anaemia [Recovered/Resolved]
  - Lung infiltration [Unknown]
  - Palpitations [Unknown]
  - Injection site swelling [Recovered/Resolved]
  - Stridor [Unknown]
  - Altered state of consciousness [Recovering/Resolving]
  - Hyperglycaemia [Recovered/Resolved]
  - Mitral valve calcification [Unknown]
  - Pneumobilia [Unknown]
  - Splenomegaly [Unknown]
  - Tachycardia [Unknown]
  - Aortic stenosis [Unknown]
  - Pyrexia [Not Recovered/Not Resolved]
  - Fluid overload [Unknown]
  - Anaemia macrocytic [Not Recovered/Not Resolved]
  - Infection [Not Recovered/Not Resolved]
  - Salmonella bacteraemia [Recovered/Resolved]
  - Stress ulcer [Unknown]
  - N-terminal prohormone brain natriuretic peptide increased [Unknown]
  - Procalcitonin increased [Unknown]
  - Leukocytosis [Unknown]
  - Pleural effusion [Unknown]
  - Occult blood positive [Unknown]
  - Gastrointestinal haemorrhage [Recovered/Resolved]
  - Tachypnoea [Unknown]
  - Thrombocytopenia [Recovered/Resolved]

NARRATIVE: CASE EVENT DATE: 20170202
